FAERS Safety Report 8826356 (Version 1)
Quarter: 2012Q4

REPORT INFORMATION
  Report Type: 
  Country: US (occurrence: US)
  Receive Date: 20121008
  Receipt Date: 20121008
  Transmission Date: 20130627
  Serious: Yes (Other)
  Sender: FDA-Public Use
  Company Number: US-PFIZER INC-2012246650

PATIENT
  Sex: Female

DRUGS (1)
  1. EFFEXOR [Suspect]
     Dosage: total dose of 450mg in a day
     Dates: end: 20120929

REACTIONS (5)
  - Depression [Unknown]
  - Arthralgia [Unknown]
  - Muscular weakness [Unknown]
  - Headache [Unknown]
  - Anger [Unknown]
